FAERS Safety Report 8795280 (Version 3)
Quarter: 2013Q2

REPORT INFORMATION
  Report Type: Report from Study
  Country: JP (occurrence: JP)
  Receive Date: 20120917
  Receipt Date: 20130607
  Transmission Date: 20140414
  Serious: Yes (Other)
  Sender: FDA-Public Use
  Company Number: JP-VERTEX PHARMACEUTICAL INC.-AE-2012-008528

PATIENT
  Age: 68 Year
  Sex: Female

DRUGS (16)
  1. VX-950 (TELAPREVIR) [Suspect]
     Indication: CHRONIC HEPATITIS C
     Dosage: 1500 MG, QD
     Route: 048
     Dates: start: 20120601, end: 20120606
  2. VX-950 (TELAPREVIR) [Suspect]
     Dosage: 750 MG, QD
     Route: 048
     Dates: start: 20120607, end: 20120628
  3. RIBAVIRIN [Suspect]
     Indication: CHRONIC HEPATITIS C
     Dosage: 600 MG, QD
     Route: 048
     Dates: start: 20120601, end: 20120621
  4. RIBAVIRIN [Suspect]
     Dosage: 400 MG, QD
     Route: 048
     Dates: start: 20120622, end: 20120628
  5. RIBAVIRIN [Suspect]
     Dosage: 400 MG, QD
     Route: 048
  6. PEGINTERFERON ALFA-2B [Suspect]
     Indication: CHRONIC HEPATITIS C
     Dosage: 80 ?G, QW
     Route: 058
     Dates: start: 20120601
  7. MEDET [Concomitant]
     Dosage: 500 MG, QD
     Route: 048
  8. EQUA [Concomitant]
     Dosage: 50 MG, QD
     Route: 048
     Dates: end: 20120713
  9. ASPARA-CA [Concomitant]
     Dosage: 400 MG, QD
     Route: 048
  10. THYRADIN S [Concomitant]
     Dosage: 50 ?G, QD
     Route: 048
  11. THYRADIN S [Concomitant]
     Dosage: 25 ?G, QD
     Route: 048
  12. METHYCOBAL [Concomitant]
     Dosage: 1500 ?G, QD
     Route: 048
  13. MEVALOTIN [Concomitant]
     Dosage: 10 MG, QD
     Route: 048
     Dates: end: 20120629
  14. LULICON [Concomitant]
     Route: 051
     Dates: start: 20120604
  15. NESINA [Concomitant]
     Dosage: 25 MG, QD
     Route: 048
     Dates: start: 20120810
  16. AMARYL [Concomitant]
     Dosage: 2 MG, QD
     Route: 048

REACTIONS (7)
  - Dizziness [Not Recovered/Not Resolved]
  - Decreased appetite [Not Recovered/Not Resolved]
  - Malaise [Recovered/Resolved]
  - Anaemia [Recovered/Resolved]
  - Rash [Recovered/Resolved]
  - Hyperuricaemia [Recovered/Resolved]
  - Nausea [Not Recovered/Not Resolved]
